FAERS Safety Report 10747371 (Version 1)
Quarter: 2015Q1

REPORT INFORMATION
  Report Type: Spontaneous
  Country: US (occurrence: None)
  Receive Date: 20150128
  Receipt Date: 20150128
  Transmission Date: 20150721
  Serious: Yes (Death, Hospitalization)
  Sender: FDA-Public Use
  Company Number: None

PATIENT
  Age: 5 Year
  Sex: Male
  Weight: 17.35 kg

DRUGS (4)
  1. MERCAPTOPURINE. [Suspect]
     Active Substance: MERCAPTOPURINE
     Dates: end: 20141202
  2. METHOTREXATE [Suspect]
     Active Substance: METHOTREXATE
     Dates: end: 20141202
  3. PREDNISONE. [Suspect]
     Active Substance: PREDNISONE
     Dates: end: 20141204
  4. VINCRISTINE SULFATE. [Suspect]
     Active Substance: VINCRISTINE SULFATE
     Dates: end: 20141204

REACTIONS (11)
  - Sepsis [None]
  - Cytomegalovirus viraemia [None]
  - Cardiopulmonary failure [None]
  - Haemorrhage [None]
  - Respiratory failure [None]
  - Febrile neutropenia [None]
  - Haemolytic anaemia [None]
  - Haematuria [None]
  - Pulmonary haemorrhage [None]
  - Catheter site related reaction [None]
  - Suture related complication [None]

NARRATIVE: CASE EVENT DATE: 20141203
